FAERS Safety Report 18466417 (Version 1)
Quarter: 2020Q4

REPORT INFORMATION
  Report Type: Spontaneous
  Country: PL (occurrence: PL)
  Receive Date: 20201104
  Receipt Date: 20201104
  Transmission Date: 20210114
  Serious: Yes (Hospitalization, Other)
  Sender: FDA-Public Use
  Company Number: PL-ROCHE-2705490

PATIENT
  Age: 67 Year
  Sex: Female

DRUGS (11)
  1. VALSACOR [Concomitant]
     Active Substance: VALSARTAN
  2. SULPIRIDE [Concomitant]
     Active Substance: SULPIRIDE
  3. METRONIDAZOLE. [Concomitant]
     Active Substance: METRONIDAZOLE
  4. DOCETAXEL. [Suspect]
     Active Substance: DOCETAXEL
     Indication: HER2 POSITIVE BREAST CANCER
     Route: 065
     Dates: start: 20200131, end: 2020
  5. CAPTOPRIL. [Concomitant]
     Active Substance: CAPTOPRIL
  6. DIURESIN SR [Concomitant]
     Active Substance: INDAPAMIDE
  7. HERCEPTIN [Suspect]
     Active Substance: TRASTUZUMAB
     Indication: HER2 POSITIVE BREAST CANCER
     Route: 065
     Dates: start: 20200131, end: 2020
  8. METFORMAX [Concomitant]
     Active Substance: METFORMIN HYDROCHLORIDE
  9. PERJETA [Suspect]
     Active Substance: PERTUZUMAB
     Indication: HER2 POSITIVE BREAST CANCER
     Dosage: AD HOC
     Route: 065
     Dates: start: 20200131, end: 2020
  10. BROMAZANIL [Concomitant]
     Active Substance: BROMAZEPAM
     Dosage: 1/2 TABL
  11. IPOREL [Concomitant]
     Active Substance: CLONIDINE

REACTIONS (4)
  - Gastroenteritis rotavirus [Recovered/Resolved]
  - Thrombocytopenia [Unknown]
  - Neutropenia [Unknown]
  - Diarrhoea [Unknown]
